FAERS Safety Report 17860017 (Version 1)
Quarter: 2020Q2

REPORT INFORMATION
  Report Type: Report from Study
  Country: ES (occurrence: ES)
  Receive Date: 20200604
  Receipt Date: 20200604
  Transmission Date: 20200714
  Serious: Yes (Hospitalization, Other)
  Sender: FDA-Public Use
  Company Number: ES-ROCHE-2356149

PATIENT
  Age: 63 Year
  Sex: Male
  Weight: 100 kg

DRUGS (10)
  1. BISOPROLOL [Concomitant]
     Active Substance: BISOPROLOL
     Route: 065
     Dates: start: 20190702
  2. FUROSEMIDE. [Concomitant]
     Active Substance: FUROSEMIDE
     Route: 065
     Dates: start: 20190702
  3. PREDNISONA [Concomitant]
     Active Substance: PREDNISONE
     Route: 065
     Dates: start: 20190702
  4. DOXAZOSINA [DOXAZOSIN] [Concomitant]
     Route: 065
     Dates: start: 20190702
  5. ATEZOLIZUMAB. [Suspect]
     Active Substance: ATEZOLIZUMAB
     Route: 042
     Dates: start: 20190516
  6. AMLODIPINO [AMLODIPINE] [Concomitant]
     Route: 065
     Dates: start: 20190702
  7. ATEZOLIZUMAB. [Suspect]
     Active Substance: ATEZOLIZUMAB
     Indication: TRANSITIONAL CELL CARCINOMA
     Route: 041
     Dates: start: 20190424
  8. ATEZOLIZUMAB. [Suspect]
     Active Substance: ATEZOLIZUMAB
     Route: 042
     Dates: start: 20190606
  9. PREDNISONA [Concomitant]
     Active Substance: PREDNISONE
     Route: 065
     Dates: start: 20190705
  10. IRBESARTAN. [Concomitant]
     Active Substance: IRBESARTAN
     Route: 065
     Dates: start: 20190702

REACTIONS (2)
  - Hepatotoxicity [Recovered/Resolved]
  - General physical health deterioration [Recovering/Resolving]

NARRATIVE: CASE EVENT DATE: 20190628
